FAERS Safety Report 8070160-2 (Version None)
Quarter: 2012Q1

REPORT INFORMATION
  Report Type: 
  Country: None (occurrence: None)
  Receive Date: 20120125
  Receipt Date: 20120116
  Transmission Date: 20120608
  Serious: Yes (Death)
  Sender: FDA-Public Use
  Company Number: GB-ROCHE-1008101

PATIENT
  Sex: Male
  Weight: 73.5 kg

DRUGS (10)
  1. FUROSEMIDE [Concomitant]
  2. CALCIUM CARBONATE [Concomitant]
  3. VALPROATE SODIUM [Suspect]
     Indication: EPILEPSY
  4. LUCENTIS [Suspect]
     Indication: PRODUCT USED FOR UNKNOWN INDICATION
     Route: 050
  5. SIMVASTATIN [Concomitant]
  6. DIGOXIN [Concomitant]
  7. FERROUS SULFATE TAB [Concomitant]
  8. ACETAMINOPHEN [Concomitant]
  9. ALENDRONATE SODIUM [Concomitant]
  10. QUETIAPINE FUMARATE [Concomitant]

REACTIONS (1)
  - DEATH [None]
